FAERS Safety Report 6185831-2 (Version None)
Quarter: 2009Q2

REPORT INFORMATION
  Report Type: 
  Country: None (occurrence: None)
  Receive Date: 20090511
  Receipt Date: 20090501
  Transmission Date: 20091009
  Serious: Yes (Hospitalization)
  Sender: FDA-Public Use
  Company Number: A0772574A

PATIENT
  Age: 45 Year
  Sex: Female
  Weight: 120.5 kg

DRUGS (5)
  1. AVANDIA [Suspect]
     Indication: DRUG USE FOR UNKNOWN INDICATION
     Route: 048
     Dates: start: 19990901, end: 20081201
  2. AVANDAMET [Suspect]
     Indication: DRUG USE FOR UNKNOWN INDICATION
     Dates: start: 19990901, end: 20081201
  3. AVANDARYL [Suspect]
     Indication: DRUG USE FOR UNKNOWN INDICATION
     Dates: start: 19990901, end: 20081201
  4. AMARYL [Suspect]
     Indication: DRUG USE FOR UNKNOWN INDICATION
     Route: 065
  5. BYETTA [Concomitant]

REACTIONS (4)
  - HEPATIC FAILURE [None]
  - HEPATITIS C [None]
  - LIVER INJURY [None]
  - WEIGHT INCREASED [None]
